FAERS Safety Report 6726422-1 (Version None)
Quarter: 2010Q2

REPORT INFORMATION
  Report Type: 
  Country: None (occurrence: None)
  Receive Date: 20100514
  Receipt Date: 20100504
  Transmission Date: 20101027
  Serious: Yes (Hospitalization)
  Sender: FDA-Public Use
  Company Number: BE-ELI_LILLY_AND_COMPANY-BE201005000836

PATIENT
  Sex: Female
  Weight: 94 kg

DRUGS (4)
  1. GEMCITABINE HCL [Suspect]
     Indication: NON-SMALL CELL LUNG CANCER
     Dosage: 1250 MG/M2, TWICE IN THREE WEEKS
     Route: 042
     Dates: start: 20100310, end: 20100428
  2. CETUXIMAB [Suspect]
     Indication: NON-SMALL CELL LUNG CANCER
     Dosage: 250 MG/M2, ONE IN ONE WEEK
     Route: 042
     Dates: start: 20100310, end: 20100428
  3. CETUXIMAB [Suspect]
     Dosage: 250 MG/M2, OTHER
     Dates: start: 20100505
  4. CISPLATIN [Suspect]
     Indication: NON-SMALL CELL LUNG CANCER
     Dosage: 75 MG/M2, ONCE EVERY THREE WEEKS
     Route: 042
     Dates: start: 20100310, end: 20100428

REACTIONS (1)
  - GENERAL PHYSICAL HEALTH DETERIORATION [None]
